FAERS Safety Report 5941494-X (Version None)
Quarter: 2008Q4

REPORT INFORMATION
  Report Type: 
  Country: None (occurrence: None)
  Receive Date: 20081105
  Receipt Date: 20081027
  Transmission Date: 20090506
  Serious: Yes (Other)
  Sender: FDA-Public Use
  Company Number: BR-ROCHE-593985

PATIENT
  Sex: Female
  Weight: 43 kg

DRUGS (2)
  1. RIVOTRIL [Suspect]
     Indication: DEPRESSION
     Dosage: OTHER INDICATION: PANIC DISORDER, MISSED ONE DAY DOSE
     Route: 048
     Dates: start: 19940101
  2. SUSTRATE [Concomitant]
     Dosage: OTHER INDICATION: ARTERIAL CLOOB PRESSURE.
     Route: 048

REACTIONS (4)
  - ABDOMINAL PAIN [None]
  - GALLBLADDER CANCER [None]
  - HERNIA [None]
  - INSOMNIA [None]
